FAERS Safety Report 23103650 (Version 1)
Quarter: 2023Q4

REPORT INFORMATION
  Report Type: Spontaneous
  Country: US (occurrence: None)
  Receive Date: 20231022
  Receipt Date: 20231022
  Transmission Date: 20240110
  Serious: Yes (Hospitalization)
  Sender: FDA-Public Use
  Company Number: None

PATIENT
  Age: 69 Year
  Sex: Male
  Weight: 127 kg

DRUGS (1)
  1. INSULIN GLARGINE [Suspect]
     Active Substance: INSULIN GLARGINE
     Dosage: OTHER STRENGTH : 100 UNIT/ML;?OTHER QUANTITY : 44 UNITS;?FREQUENCY : DAILY;?
     Route: 058
     Dates: start: 20230201

REACTIONS (2)
  - Hyperglycaemia [None]
  - Therapy change [None]

NARRATIVE: CASE EVENT DATE: 20230228
